FAERS Safety Report 15315199 (Version 3)
Quarter: 2018Q4

REPORT INFORMATION
  Report Type: Spontaneous
  Country: US (occurrence: US)
  Receive Date: 20180824
  Receipt Date: 20181029
  Transmission Date: 20190204
  Serious: Yes (Other)
  Sender: FDA-Public Use
  Company Number: US-HIKMA PHARMACEUTICALS USA INC.-US-H14001-18-06990

PATIENT
  Age: 20 Year
  Sex: Female

DRUGS (21)
  1. HYDROMORPHONE [Suspect]
     Active Substance: HYDROMORPHONE
     Route: 048
     Dates: start: 20170930
  2. HYDROMORPHONE [Suspect]
     Active Substance: HYDROMORPHONE
     Route: 048
     Dates: start: 20171002
  3. MORPHINE [Suspect]
     Active Substance: MORPHINE
     Route: 048
     Dates: start: 20170915
  4. HYDROMORPHONE [Suspect]
     Active Substance: HYDROMORPHONE
     Route: 048
     Dates: start: 20171003, end: 20171003
  5. HYDROMORPHONE [Suspect]
     Active Substance: HYDROMORPHONE
     Route: 048
     Dates: start: 20170927
  6. DILAUDID [Suspect]
     Active Substance: HYDROMORPHONE HYDROCHLORIDE
     Indication: PROCEDURAL PAIN
     Route: 042
     Dates: start: 20170926
  7. IBUPROFEN. [Concomitant]
     Active Substance: IBUPROFEN
     Indication: PRODUCT USED FOR UNKNOWN INDICATION
     Route: 065
  8. OXYCODONE [Concomitant]
     Active Substance: OXYCODONE
     Indication: PAIN
     Route: 065
  9. HYDROMORPHONE [Suspect]
     Active Substance: HYDROMORPHONE
     Route: 048
     Dates: start: 20171001
  10. DEXAMETHASONE. [Concomitant]
     Active Substance: DEXAMETHASONE
     Indication: CUTANEOUS LYMPHOMA
     Route: 065
  11. MORPHINE [Suspect]
     Active Substance: MORPHINE
     Indication: PROCEDURAL PAIN
     Route: 048
     Dates: start: 20170914
  12. MORPHINE [Suspect]
     Active Substance: MORPHINE
     Indication: PROCEDURAL PAIN
     Route: 042
     Dates: start: 20170914
  13. HYDROMORPHONE [Suspect]
     Active Substance: HYDROMORPHONE
     Route: 048
     Dates: start: 20170926
  14. FENTANYL. [Concomitant]
     Active Substance: FENTANYL
     Indication: PROCEDURAL PAIN
     Route: 042
  15. MORPHINE [Suspect]
     Active Substance: MORPHINE
     Route: 042
     Dates: start: 20170915, end: 20170916
  16. HYDROMORPHONE [Suspect]
     Active Substance: HYDROMORPHONE
     Route: 048
     Dates: start: 20170928
  17. HYDROMORPHONE [Suspect]
     Active Substance: HYDROMORPHONE
     Route: 048
     Dates: start: 20170929
  18. MORPHINE [Suspect]
     Active Substance: MORPHINE
     Indication: PAIN
     Route: 042
  19. BUPROPION. [Concomitant]
     Active Substance: BUPROPION
     Indication: PRODUCT USED FOR UNKNOWN INDICATION
     Route: 065
  20. HYDROMORPHONE [Suspect]
     Active Substance: HYDROMORPHONE
     Indication: PROCEDURAL PAIN
     Route: 048
     Dates: start: 20170926
  21. ETOPOSIDE. [Concomitant]
     Active Substance: ETOPOSIDE
     Indication: CUTANEOUS LYMPHOMA
     Route: 065

REACTIONS (1)
  - Myoclonus [Recovered/Resolved]

NARRATIVE: CASE EVENT DATE: 20170916
